FAERS Safety Report 15751737 (Version 1)
Quarter: 2018Q4

REPORT INFORMATION
  Report Type: Spontaneous
  Country: CA (occurrence: CA)
  Receive Date: 20181221
  Receipt Date: 20181221
  Transmission Date: 20190205
  Serious: Yes (Other)
  Sender: FDA-Public Use
  Company Number: CA-BAYER-2018-240092

PATIENT
  Age: 27 Year
  Sex: Female
  Weight: 193 kg

DRUGS (2)
  1. MIRENA [Suspect]
     Active Substance: LEVONORGESTREL
     Indication: CONTRACEPTION
     Dosage: 20 MCG/24HR, CONT
     Route: 015
  2. MIRENA [Suspect]
     Active Substance: LEVONORGESTREL
     Indication: CONTRACEPTION

REACTIONS (6)
  - Back pain [Recovering/Resolving]
  - Vaginal haemorrhage [Recovering/Resolving]
  - Abdominal pain lower [Recovering/Resolving]
  - Depressive symptom [Recovering/Resolving]
  - Menorrhagia [Recovering/Resolving]
  - Impaired work ability [Recovering/Resolving]
